FAERS Safety Report 4434329-8 (Version None)
Quarter: 2004Q3

REPORT INFORMATION
  Report Type: 
  Country: None (occurrence: None)
  Receive Date: 20040826
  Receipt Date: 20040818
  Transmission Date: 20050211
  Serious: Yes (Disabling)
  Sender: FDA-Public Use
  Company Number: US-MERCK-0408USA01547

PATIENT
  Age: 68 Year
  Sex: Female

DRUGS (7)
  1. CARDIZEM [Concomitant]
     Route: 065
  2. ZETIA [Suspect]
     Indication: BLOOD CHOLESTEROL INCREASED
     Route: 048
     Dates: start: 20040811, end: 20040801
  3. GLYBURIDE [Concomitant]
     Route: 065
  4. METOPROLOL [Concomitant]
     Route: 065
  5. PAROXETINE [Concomitant]
     Route: 065
  6. ZANTAC [Concomitant]
     Route: 065
  7. ZOCOR [Concomitant]
     Route: 048

REACTIONS (2)
  - FEELING COLD [None]
  - POLLAKIURIA [None]
